FAERS Safety Report 7191145-4 (Version None)
Quarter: 2010Q4

REPORT INFORMATION
  Report Type: 
  Country: None (occurrence: None)
  Receive Date: 20101223
  Receipt Date: 20100811
  Transmission Date: 20110411
  Serious: No
  Sender: FDA-Public Use
  Company Number: US-AMGEN-KDL430691

PATIENT

DRUGS (8)
  1. ENBREL [Suspect]
     Indication: PRODUCT USED FOR UNKNOWN INDICATION
     Dosage: 50 MG, QWK
     Route: 058
  2. LEVOTHYROXINE SODIUM [Concomitant]
     Dosage: 100 A?G, UNK
  3. HYDROXYCHLOROQUINE SULFATE [Concomitant]
     Dosage: 200 MG, UNK
  4. CELECOXIB [Concomitant]
     Dosage: 100 MG, UNK
  5. CONJUGATED ESTROGEN [Concomitant]
     Dosage: .3 MG, UNK
  6. GABAPENTIN [Concomitant]
     Dosage: 100 MG, UNK
  7. LEFLUNOMIDE [Concomitant]
     Dosage: 10 MG, UNK
  8. ESCITALOPRAM OXALATE [Concomitant]
     Dosage: 10 MG, UNK

REACTIONS (1)
  - INJECTION SITE ERYTHEMA [None]
